FAERS Safety Report 24087362 (Version 1)
Quarter: 2024Q3

REPORT INFORMATION
  Report Type: Spontaneous
  Country: ES (occurrence: ES)
  Receive Date: 20240714
  Receipt Date: 20240714
  Transmission Date: 20241016
  Serious: Yes (Other)
  Sender: JOHNSON AND JOHNSON
  Company Number: ES-JNJFOC-20240724085

PATIENT
  Age: 34 Year
  Sex: Female
  Weight: 66.9 kg

DRUGS (6)
  1. TRACLEER [Suspect]
     Active Substance: BOSENTAN
     Indication: Pulmonary hypertension
     Route: 048
     Dates: start: 201011
  2. TRACLEER [Suspect]
     Active Substance: BOSENTAN
     Dosage: 62.5: 1 COMP
     Route: 048
     Dates: start: 201206
  3. TRACLEER [Suspect]
     Active Substance: BOSENTAN
     Dosage: 62.5: 1 COMP
     Route: 048
     Dates: start: 20170827
  4. SINTROM [Suspect]
     Active Substance: ACENOCOUMAROL
     Indication: Product used for unknown indication
     Route: 065
     Dates: start: 201206
  5. SINTROM [Suspect]
     Active Substance: ACENOCOUMAROL
     Route: 065
     Dates: start: 20170827
  6. ADALAT [Suspect]
     Active Substance: NIFEDIPINE
     Indication: Product used for unknown indication
     Dosage: 20
     Route: 065
     Dates: start: 20170827

REACTIONS (1)
  - Autoimmune hepatitis [Unknown]

NARRATIVE: CASE EVENT DATE: 20220712
